FAERS Safety Report 16804961 (Version 2)
Quarter: 2019Q4

REPORT INFORMATION
  Report Type: Spontaneous
  Country: SK (occurrence: SK)
  Receive Date: 20190913
  Receipt Date: 20191001
  Transmission Date: 20200122
  Serious: Yes (Hospitalization)
  Sender: FDA-Public Use
  Company Number: PHHY2019SK212317

PATIENT
  Sex: Female
  Weight: 1 kg

DRUGS (3)
  1. FUROSEMID [Suspect]
     Active Substance: FUROSEMIDE
     Indication: FOETAL EXPOSURE DURING PREGNANCY
     Route: 064
  2. SILDENAFIL. [Suspect]
     Active Substance: SILDENAFIL
     Indication: FOETAL EXPOSURE DURING PREGNANCY
     Route: 064
  3. TREPROSTINIL. [Suspect]
     Active Substance: TREPROSTINIL
     Indication: FOETAL EXPOSURE DURING PREGNANCY
     Dosage: UNK
     Route: 064

REACTIONS (3)
  - Premature baby [Unknown]
  - Low birth weight baby [Unknown]
  - Foetal exposure during pregnancy [Unknown]
